FAERS Safety Report 24323883 (Version 1)
Quarter: 2024Q3

REPORT INFORMATION
  Report Type: Report from Study
  Country: IT (occurrence: None)
  Receive Date: 20240916
  Receipt Date: 20240916
  Transmission Date: 20241017
  Serious: Yes (Hospitalization)
  Sender: ASTRAZENECA
  Company Number: 2024A206973

PATIENT
  Age: 58 Year
  Sex: Female

DRUGS (4)
  1. QUETIAPINE [Suspect]
     Active Substance: QUETIAPINE
     Route: 048
  2. GABAPENTIN [Suspect]
     Active Substance: GABAPENTIN
  3. ESTAZOLAM [Suspect]
     Active Substance: ESTAZOLAM
  4. PAROXETINE [Concomitant]
     Active Substance: PAROXETINE

REACTIONS (1)
  - Sopor [Recovered/Resolved]

NARRATIVE: CASE EVENT DATE: 20240125
